FAERS Safety Report 7599293-1 (Version None)
Quarter: 2011Q3

REPORT INFORMATION
  Report Type: 
  Country: None (occurrence: None)
  Receive Date: 20110711
  Receipt Date: 20110623
  Transmission Date: 20111222
  Serious: Yes (Other)
  Sender: FDA-Public Use
  Company Number: US-BAYER-2011-055558

PATIENT
  Age: 77 Year
  Sex: Male
  Weight: 61 kg

DRUGS (3)
  1. AMOXICILLIN [Concomitant]
  2. BREATHING TREATMENTS [Concomitant]
  3. ASPIRIN [Suspect]

REACTIONS (5)
  - BURNING SENSATION [None]
  - HYPERSENSITIVITY [None]
  - RASH [None]
  - URTICARIA [None]
  - PRURITUS [None]
